FAERS Safety Report 6839865-2 (Version None)
Quarter: 2010Q2

REPORT INFORMATION
  Report Type: 
  Country: None (occurrence: None)
  Receive Date: 20100629
  Receipt Date: 20100416
  Transmission Date: 20101027
  Serious: Yes (Other)
  Sender: FDA-Public Use
  Company Number: US-WYE-H14770610

PATIENT
  Age: 67 Year
  Sex: Female
  Weight: 67.19 kg

DRUGS (4)
  1. PRISTIQ [Suspect]
     Dosage: 50 MG 1X PER 1 DAY ; 50 MG 1X PER 1 DAY, ORAL ; 100 MG 1X PER 1 DAY, ORAL
     Route: 048
     Dates: start: 20090701
  2. SYNTHROID [Concomitant]
  3. DIOVAN [Concomitant]
  4. ATORVASTATIN CALCIUM [Concomitant]

REACTIONS (2)
  - EXPIRED DRUG ADMINISTERED [None]
  - HEAD DISCOMFORT [None]
